FAERS Safety Report 11534087 (Version 1)
Quarter: 2015Q3

REPORT INFORMATION
  Report Type: Spontaneous
  Country: US (occurrence: US)
  Receive Date: 20150922
  Receipt Date: 20150922
  Transmission Date: 20151125
  Serious: Yes (Other)
  Sender: FDA-Public Use
  Company Number: US-ROCHE-1637000

PATIENT
  Sex: Male

DRUGS (5)
  1. FUROSEMIDE. [Concomitant]
     Active Substance: FUROSEMIDE
  2. LEVOTHYROXIN [Concomitant]
     Active Substance: LEVOTHYROXINE
  3. ERIVEDGE [Suspect]
     Active Substance: VISMODEGIB
     Indication: BASAL CELL CARCINOMA
     Route: 048
     Dates: start: 20140503
  4. ELIQUIS [Concomitant]
     Active Substance: APIXABAN
  5. ERIVEDGE [Suspect]
     Active Substance: VISMODEGIB
     Indication: SALIVARY GLAND CANCER

REACTIONS (3)
  - Cardiac failure congestive [Unknown]
  - Weight decreased [Unknown]
  - Asthenia [Unknown]
